FAERS Safety Report 5028862-8 (Version None)
Quarter: 2006Q2

REPORT INFORMATION
  Report Type: 
  Country: None (occurrence: None)
  Receive Date: 20060619
  Receipt Date: 20060612
  Transmission Date: 20061013
  Serious: Yes (Hospitalization)
  Sender: FDA-Public Use
  Company Number: US-JNJFOC-20060603460

PATIENT
  Sex: Female
  Weight: 128.37 kg

DRUGS (12)
  1. DURAGESIC-100 [Suspect]
     Indication: PAIN
     Route: 062
  2. LAMICTAL [Concomitant]
     Indication: PAIN
     Route: 048
  3. SPIRONOLACTONE [Concomitant]
     Indication: PAIN
     Route: 048
  4. CYMBALTA [Concomitant]
     Indication: PAIN
     Route: 048
  5. NORVASC [Concomitant]
     Indication: PAIN
     Route: 048
  6. LASIX [Concomitant]
     Indication: PAIN
     Route: 048
  7. CLONIDINE [Concomitant]
     Indication: PAIN
     Route: 048
  8. TYLENOL W/ CODEINE [Concomitant]
     Indication: PAIN
     Route: 048
  9. PERCOCET [Concomitant]
  10. PERCOCET [Concomitant]
     Indication: PAIN
  11. LORAZEPAM [Concomitant]
     Indication: PAIN
     Route: 048
  12. ENABLEX [Concomitant]
     Indication: PAIN
     Route: 048

REACTIONS (5)
  - BACK PAIN [None]
  - CHOLELITHIASIS [None]
  - MALAISE [None]
  - PROCEDURAL COMPLICATION [None]
  - WEIGHT DECREASED [None]
